FAERS Safety Report 10402668 (Version 1)
Quarter: 2014Q3

REPORT INFORMATION
  Report Type: Spontaneous
  Country: US (occurrence: None)
  Receive Date: 20140821
  Receipt Date: 20140821
  Transmission Date: 20150326
  Serious: Yes (Disabling)
  Sender: FDA-Public Use
  Company Number: None

PATIENT
  Age: 35 Year
  Sex: Female
  Weight: 126.55 kg

DRUGS (1)
  1. PARAGARD T380A [Suspect]
     Active Substance: COPPER

REACTIONS (7)
  - Metal poisoning [None]
  - Dizziness [None]
  - Anxiety [None]
  - Cardiac disorder [None]
  - Hyperacusis [None]
  - Uterine leiomyoma [None]
  - Photosensitivity reaction [None]
